FAERS Safety Report 19521997 (Version 1)
Quarter: 2021Q3

REPORT INFORMATION
  Report Type: Spontaneous
  Country: NL (occurrence: NL)
  Receive Date: 20210712
  Receipt Date: 20210712
  Transmission Date: 20211014
  Serious: Yes (Death)
  Sender: FDA-Public Use
  Company Number: NL-CUMBERLAND-2021-NL-000001

PATIENT
  Age: 70 Year
  Sex: Male

DRUGS (9)
  1. COMIRNATY [Concomitant]
     Active Substance: TOZINAMERAN
     Indication: COVID-19 IMMUNISATION
     Route: 065
     Dates: start: 20210605
  2. CLOPIDOGREL TABLET   75MG / BRAND NAME NOT SPECIFIED [Concomitant]
     Active Substance: CLOPIDOGREL BISULFATE
     Indication: PRODUCT USED FOR UNKNOWN INDICATION
     Dosage: TABLET, 75 MG (MILLIGRAM)
     Route: 048
  3. SIMVASTATINE TABLET FO 40MG / BRAND NAME NOT SPECIFIED [Concomitant]
     Active Substance: SIMVASTATIN
     Indication: PRODUCT USED FOR UNKNOWN INDICATION
     Dosage: FILMOMHULDE TABLET, 40 MG (MILLIGRAM)
     Route: 048
  4. ETORICOXIB TABLET FO  90MG / BRAND NAME NOT SPECIFIED [Concomitant]
     Indication: PRODUCT USED FOR UNKNOWN INDICATION
     Dosage: FILMOMHULDE TABLET, 90 MG (MILLIGRAM)
     Route: 048
  5. PERINDOPRIL TABLET 8MG (ERBUMINE) / BRAND NAME NOT SPECIFIED [Concomitant]
     Indication: PRODUCT USED FOR UNKNOWN INDICATION
     Dosage: TABLET, 8 MG (MILLIGRAM)
     Route: 048
  6. SULFASALAZINE TABLET MSR 500MG / BRAND NAME NOT SPECIFIED [Concomitant]
     Active Substance: SULFASALAZINE
     Indication: PRODUCT USED FOR UNKNOWN INDICATION
     Dosage: MAAGSAPRESISTENTE TABLET, 500 MG (MILLIGRAM)
     Route: 048
  7. METHOTREXATE. [Suspect]
     Active Substance: METHOTREXATE
     Indication: RHEUMATOID ARTHRITIS
     Dosage: 1X PER WEEK 25 MG VIA INJECTIE
     Dates: start: 2008
  8. HYDROXYCHLOROQUINE TABLET OMHULD 200MG / BRAND NAME NOT SPECIFIED [Concomitant]
     Indication: PRODUCT USED FOR UNKNOWN INDICATION
     Dosage: OMHULDE TABLET, 200 MG (MILLIGRAM)
     Route: 048
  9. PANTOPRAZOL TABLET MSR 20MG / BRAND NAME NOT SPECIFIED [Concomitant]
     Active Substance: PANTOPRAZOLE
     Indication: PRODUCT USED FOR UNKNOWN INDICATION
     Dosage: MAAGSAPRESISTENTE TABLET, 20 MG (MILLIGRAM)
     Route: 048

REACTIONS (6)
  - Pneumonia [Fatal]
  - Myocardial infarction [Fatal]
  - Dyspnoea [Fatal]
  - Ventricular tachycardia [Fatal]
  - Coronary artery stenosis [Fatal]
  - Malaise [Fatal]

NARRATIVE: CASE EVENT DATE: 20210607
